FAERS Safety Report 24227341 (Version 1)
Quarter: 2024Q3

REPORT INFORMATION
  Report Type: Spontaneous
  Country: US (occurrence: None)
  Receive Date: 20240816
  Receipt Date: 20240816
  Transmission Date: 20241016
  Serious: Yes (Other)
  Sender: Public
  Company Number: None

PATIENT
  Age: 79 Year
  Sex: Male
  Weight: 80 kg

DRUGS (1)
  1. MILRINONE [Suspect]
     Active Substance: MILRINONE

REACTIONS (5)
  - Device use error [None]
  - Device programming error [None]
  - Incorrect dose administered by device [None]
  - Device malfunction [None]
  - Underdose [None]

NARRATIVE: CASE EVENT DATE: 20240807
